FAERS Safety Report 9396055 (Version 2)
Quarter: 2013Q4

REPORT INFORMATION
  Report Type: Spontaneous
  Country: GB (occurrence: None)
  Receive Date: 20130708
  Receipt Date: 20131031
  Transmission Date: 20140711
  Serious: Yes (Other)
  Sender: FDA-Public Use
  Company Number: AUR-APL-2013-05540

PATIENT
  Age: 34 Year
  Sex: Male
  Weight: 65.2 kg

DRUGS (3)
  1. MIRTAZAPINE [Suspect]
     Indication: PRODUCT USED FOR UNKNOWN INDICATION
     Dates: start: 20130419
  2. DIAZEPAM (DIAZEPAM) [Concomitant]
  3. TRAZODONE (TRAZODONE) [Concomitant]

REACTIONS (3)
  - Nightmare [None]
  - Mood swings [None]
  - Agitation [None]
